FAERS Safety Report 11768331 (Version 2)
Quarter: 2016Q4

REPORT INFORMATION
  Report Type: Spontaneous
  Country: US (occurrence: US)
  Receive Date: 20151123
  Receipt Date: 20161130
  Transmission Date: 20170206
  Serious: No
  Sender: FDA-Public Use
  Company Number: US-TEVA-596931USA

PATIENT
  Age: 61 Year
  Sex: Female

DRUGS (9)
  1. STRONTIUM [Concomitant]
     Active Substance: STRONTIUM
  2. FOLIC ACID. [Concomitant]
     Active Substance: FOLIC ACID
  3. VITAMIN D [Concomitant]
     Active Substance: CHOLECALCIFEROL
  4. CALCIUM [Concomitant]
     Active Substance: CALCIUM
  5. KEPPRA [Concomitant]
     Active Substance: LEVETIRACETAM
  6. CLOZAPINE. [Suspect]
     Active Substance: CLOZAPINE
     Dosage: 3 TABLETS AT 5 PM AND 4 TABLETS AT BED
     Dates: start: 201501, end: 20150817
  7. VITAMIN B12 [Concomitant]
     Active Substance: CYANOCOBALAMIN
  8. VITAMIN K [Concomitant]
     Active Substance: PHYTONADIONE
  9. ARMOUR THYROID [Concomitant]
     Active Substance: THYROID, PORCINE

REACTIONS (8)
  - Gait disturbance [Recovering/Resolving]
  - Pyrexia [Recovering/Resolving]
  - Pain in extremity [Recovered/Resolved]
  - Dysstasia [Recovering/Resolving]
  - Drug hypersensitivity [Recovering/Resolving]
  - Product substitution issue [Recovered/Resolved]
  - Arthralgia [Recovered/Resolved]
  - Toxicity to various agents [Recovering/Resolving]

NARRATIVE: CASE EVENT DATE: 201506
